FAERS Safety Report 25841041 (Version 1)
Quarter: 2025Q3

REPORT INFORMATION
  Report Type: Spontaneous
  Country: AU (occurrence: AU)
  Receive Date: 20250924
  Receipt Date: 20250924
  Transmission Date: 20251021
  Serious: Yes (Hospitalization)
  Sender: CIPLA
  Company Number: AU-CIPLA (EU) LIMITED-2025AU11867

PATIENT

DRUGS (22)
  1. RIVAROXABAN [Suspect]
     Active Substance: RIVAROXABAN
     Indication: Deep vein thrombosis
     Dosage: 20 MILLIGRAM, QD (1 DAY)
     Route: 048
     Dates: start: 20200101
  2. ALVESCO [Concomitant]
     Active Substance: CICLESONIDE
     Indication: Pneumonitis
     Dosage: UNK, QD (INTERVAL: 1 DAY)
     Route: 065
     Dates: start: 20210101
  3. AMOXICILLIN\CLAVULANATE POTASSIUM [Concomitant]
     Active Substance: AMOXICILLIN\CLAVULANATE POTASSIUM
     Indication: Prophylaxis
     Route: 048
     Dates: start: 20240101
  4. BACTRIM DS [Concomitant]
     Active Substance: SULFAMETHOXAZOLE\TRIMETHOPRIM
     Indication: Prophylaxis
     Route: 048
     Dates: start: 20250430
  5. LYRICA [Concomitant]
     Active Substance: PREGABALIN
     Indication: Prophylaxis
     Dosage: 50 MILLIGRAM, QD (INTERVAL: 1 DAY)
     Route: 048
     Dates: start: 20230101
  6. NOVORAPID [Concomitant]
     Active Substance: INSULIN ASPART
     Indication: Type 1 diabetes mellitus
     Dosage: UNK, QD  (INTERVAL: 1 DAY)
     Route: 058
     Dates: start: 20240101
  7. METHYL SALICYLATE\PEPPERMINT OIL\SODIUM BICARBONATE\SODIUM CHLORIDE [Concomitant]
     Active Substance: METHYL SALICYLATE\PEPPERMINT OIL\SODIUM BICARBONATE\SODIUM CHLORIDE
     Indication: Dental disorder prophylaxis
     Route: 048
     Dates: start: 20250516
  8. AZITHROMYCIN [Concomitant]
     Active Substance: AZITHROMYCIN
     Indication: Prophylaxis
     Dosage: 500 MILLIGRAM, QD (INTERVAL: 1 DAY)
     Route: 048
     Dates: start: 20240101
  9. BETAMETHASONE [Concomitant]
     Active Substance: BETAMETHASONE
     Indication: Skin exfoliation
     Dosage: UNK, QD  (INTERVAL: 1 DAY)
     Route: 061
     Dates: start: 20250529
  10. CLOPIDOGREL [Concomitant]
     Active Substance: CLOPIDOGREL BISULFATE
     Indication: Myocardial ischaemia
     Dosage: 75 MILLIGRAM, QD (INTERVAL: 1 DAY)
     Route: 048
     Dates: start: 20240101
  11. DEXAMETHASONE [Concomitant]
     Active Substance: DEXAMETHASONE
     Indication: Plasma cell myeloma
     Route: 048
     Dates: start: 20250612, end: 20250612
  12. ERYTHROMYCIN [Concomitant]
     Active Substance: ERYTHROMYCIN
     Indication: Lower respiratory tract infection
     Route: 048
     Dates: start: 20250625
  13. ESOMEPRAZOLE [Concomitant]
     Active Substance: ESOMEPRAZOLE
     Indication: Gastrooesophageal reflux disease
     Dosage: 20 MILLIGRAM, QD (INTERVAL: 1 DAY)
     Route: 048
     Dates: start: 20200101
  14. FENOFIBRATE [Concomitant]
     Active Substance: FENOFIBRATE
     Indication: Hypercholesterolaemia
     Dosage: UNK, QD  (INTERVAL: 1 DAY)
     Route: 048
     Dates: start: 20240601
  15. FENTANYL [Concomitant]
     Active Substance: FENTANYL
     Indication: Prophylaxis
     Route: 062
     Dates: start: 20250201
  16. GLICLAZIDE [Concomitant]
     Active Substance: GLICLAZIDE
     Indication: Type 1 diabetes mellitus
     Dosage: 60 MILLIGRAM, QD (INTERVAL: 1 DAY)
     Route: 048
     Dates: start: 20250518
  17. LIDOCAINE [Concomitant]
     Active Substance: LIDOCAINE
     Indication: Dental disorder prophylaxis
     Route: 048
     Dates: start: 20250516
  18. MOLNUPIRAVIR [Concomitant]
     Active Substance: MOLNUPIRAVIR
     Indication: COVID-19
     Route: 048
     Dates: start: 20250629
  19. NIZATIDINE [Concomitant]
     Active Substance: NIZATIDINE
     Indication: Gastrooesophageal reflux disease
     Dosage: 150 MILLIGRAM, QD (INTERVAL; 1 DAY)
     Route: 048
     Dates: start: 20200101
  20. POMALIDOMIDE [Concomitant]
     Active Substance: POMALIDOMIDE
     Indication: Plasma cell myeloma
     Route: 048
     Dates: start: 20250612, end: 20250615
  21. PREDNISOLONE [Concomitant]
     Active Substance: PREDNISOLONE
     Indication: Emphysema
     Dosage: 25 MILLIGRAM, QD (INTERVAL: 1 DAY)
     Route: 048
     Dates: start: 20250625
  22. TALQUETAMAB [Concomitant]
     Active Substance: TALQUETAMAB
     Indication: Plasma cell myeloma
     Route: 058
     Dates: start: 20250502

REACTIONS (1)
  - Pyrexia [Recovered/Resolved]

NARRATIVE: CASE EVENT DATE: 20250615
